FAERS Safety Report 4335179-3 (Version None)
Quarter: 2004Q2

REPORT INFORMATION
  Report Type: 
  Country: None (occurrence: None)
  Receive Date: 20040408
  Receipt Date: 20030909
  Transmission Date: 20050107
  Serious: Yes (Other)
  Sender: FDA-Public Use
  Company Number: PHBS2003BR09811

PATIENT
  Age: 27 Year
  Sex: Female
  Weight: 66 kg

DRUGS (5)
  1. LEPONEX [Suspect]
     Indication: AFFECT LABILITY
     Dosage: 600 MG/DAY
     Route: 048
     Dates: start: 20010101
  2. LEPONEX [Suspect]
     Dosage: 100 MG, BID
     Route: 048
  3. PAROXETINE HCL [Suspect]
     Indication: IRRITABILITY
     Dosage: 20 MG, QD
     Route: 048
     Dates: start: 20010101
  4. TRYPTANOL [Concomitant]
     Indication: SALIVARY HYPERSECRETION
     Dosage: 25 MG, QD
     Dates: start: 20010101
  5. WELLBUTRIN [Concomitant]
     Indication: SLEEP DISORDER
     Dosage: 150 MG, QD
     Route: 048
     Dates: start: 20030801

REACTIONS (11)
  - ANXIETY [None]
  - CONFUSIONAL STATE [None]
  - CONSTIPATION [None]
  - DIFFICULTY IN WALKING [None]
  - DRUG INTERACTION [None]
  - FATIGUE [None]
  - HYPERSOMNIA [None]
  - IRRITABILITY [None]
  - RASH [None]
  - SALIVARY HYPERSECRETION [None]
  - SOMNOLENCE [None]
